FAERS Safety Report 4936285-2 (Version None)
Quarter: 2006Q1

REPORT INFORMATION
  Report Type: 
  Country: None (occurrence: None)
  Receive Date: 20060307
  Receipt Date: 20060227
  Transmission Date: 20060701
  Serious: Yes (Hospitalization, Other)
  Sender: FDA-Public Use
  Company Number: US-AVENTIS-200612007US

PATIENT
  Sex: Male
  Weight: 61 kg

DRUGS (11)
  1. LOVENOX [Suspect]
     Indication: THROMBOSIS PROPHYLAXIS
     Dates: start: 20060115, end: 20060207
  2. LOVENOX [Suspect]
     Dates: start: 20060214
  3. EPOGEN [Suspect]
     Dosage: DOSE: UNK
     Route: 051
     Dates: start: 20051101, end: 20060207
  4. VINCRISTINE [Suspect]
     Indication: ACUTE LYMPHOCYTIC LEUKAEMIA
     Dosage: DOSE: UNK
     Dates: start: 20051101
  5. ASPARAGINASE [Concomitant]
     Indication: ACUTE LYMPHOCYTIC LEUKAEMIA
     Dosage: DOSE: UNK
     Dates: start: 20051101
  6. METHOTREXATE [Concomitant]
     Indication: ACUTE LYMPHOCYTIC LEUKAEMIA
     Dosage: DOSE: UNK
     Dates: start: 20051101
  7. MARINOL [Concomitant]
     Dosage: DOSE: UNK
  8. CELEXA [Concomitant]
     Dosage: DOSE: UNK
  9. SEPTRA [Concomitant]
     Dosage: DOSE: UNK
  10. IRON [Concomitant]
     Dosage: DOSE: UNK
  11. SENNA [Concomitant]
     Dosage: DOSE: UNK

REACTIONS (7)
  - CHOKING SENSATION [None]
  - CONVULSION [None]
  - DYSKINESIA [None]
  - FALL [None]
  - MUSCULOSKELETAL STIFFNESS [None]
  - TONGUE BITING [None]
  - VISUAL DISTURBANCE [None]
